FAERS Safety Report 5261492-1 (Version None)
Quarter: 2007Q1

REPORT INFORMATION
  Report Type: 
  Country: None (occurrence: None)
  Receive Date: 20070307
  Receipt Date: 20070213
  Transmission Date: 20070707
  Serious: Yes (Hospitalization)
  Sender: FDA-Public Use
  Company Number: CAO07000243

PATIENT
  Age: 78 Year
  Sex: Male

DRUGS (2)
  1. METAMUCIL-2 [Suspect]
     Dosage: 1 TSP, 1/DAY FOR 3650 DAYS, ORAL
     Route: 048
     Dates: start: 19970212, end: 20070210
  2. DRUG USED IN DIABETES [Concomitant]

REACTIONS (2)
  - INTESTINAL OBSTRUCTION [None]
  - PAIN [None]
